FAERS Safety Report 4506178-3 (Version None)
Quarter: 2004Q4

REPORT INFORMATION
  Report Type: 
  Country: None (occurrence: None)
  Receive Date: 20041119
  Receipt Date: 20041109
  Transmission Date: 20050328
  Serious: Yes (Disabling)
  Sender: FDA-Public Use
  Company Number: US-MERCK-0411USA01670

PATIENT
  Age: 26 Year
  Sex: Male

DRUGS (1)
  1. PROPECIA [Suspect]
     Indication: ALOPECIA
     Route: 048
     Dates: start: 20030101, end: 20040701

REACTIONS (4)
  - BLOOD TESTOSTERONE DECREASED [None]
  - DISTURBANCE IN ATTENTION [None]
  - EJACULATION FAILURE [None]
  - ERECTILE DYSFUNCTION [None]
